FAERS Safety Report 16741883 (Version 5)
Quarter: 2020Q4

REPORT INFORMATION
  Report Type: Report from Study
  Country: US (occurrence: US)
  Receive Date: 20190826
  Receipt Date: 20201128
  Transmission Date: 20210113
  Serious: No
  Sender: FDA-Public Use
  Company Number: PHEH2019US035136

PATIENT
  Age: 21 Year
  Sex: Female

DRUGS (2)
  1. ILARIS [Suspect]
     Active Substance: CANAKINUMAB
     Dosage: 150 MG, Q4W
     Route: 058
     Dates: start: 20190724
  2. ILARIS [Suspect]
     Active Substance: CANAKINUMAB
     Indication: PYREXIA
     Dosage: 300 MG, Q4W
     Route: 058

REACTIONS (7)
  - Oropharyngeal pain [Unknown]
  - Inappropriate schedule of product administration [Unknown]
  - Illness [Unknown]
  - Cough [Unknown]
  - Condition aggravated [Unknown]
  - Flushing [Unknown]
  - Nasopharyngitis [Unknown]

NARRATIVE: CASE EVENT DATE: 20200301
